FAERS Safety Report 23844630 (Version 5)
Quarter: 2025Q2

REPORT INFORMATION
  Report Type: Spontaneous
  Country: US (occurrence: US)
  Receive Date: 20240511
  Receipt Date: 20250521
  Transmission Date: 20250716
  Serious: No
  Sender: SANOFI AVENTIS
  Company Number: US-SA-SAC20240501000481

PATIENT
  Age: 28 Year
  Sex: Male

DRUGS (4)
  1. ELOCTATE [Suspect]
     Active Substance: EFMOROCTOCOG ALFA
     Route: 042
  2. ELOCTATE [Suspect]
     Active Substance: EFMOROCTOCOG ALFA
     Route: 042
  3. ELOCTATE [Suspect]
     Active Substance: EFMOROCTOCOG ALFA
     Route: 042
  4. ELOCTATE [Suspect]
     Active Substance: EFMOROCTOCOG ALFA
     Route: 042

REACTIONS (6)
  - Haemorrhage [Recovered/Resolved]
  - Contusion [Recovered/Resolved]
  - Limb injury [Recovered/Resolved]
  - Haemorrhage [Unknown]
  - Haemorrhage [Unknown]
  - Fungal infection [Unknown]

NARRATIVE: CASE EVENT DATE: 20240329
